FAERS Safety Report 16375287 (Version 1)
Quarter: 2019Q2

REPORT INFORMATION
  Report Type: Spontaneous
  Country: JP (occurrence: JP)
  Receive Date: 20190531
  Receipt Date: 20190531
  Transmission Date: 20190711
  Serious: Yes (Other)
  Sender: FDA-Public Use
  Company Number: JP-AMGEN-JPNSP2019084361

PATIENT
  Age: 80 Year
  Sex: Female

DRUGS (1)
  1. PRALIA [Suspect]
     Active Substance: DENOSUMAB
     Indication: PRODUCT USED FOR UNKNOWN INDICATION
     Dosage: UNK, ONCE
     Route: 065
     Dates: start: 20180929

REACTIONS (6)
  - Tooth disorder [Unknown]
  - Stomatitis [Recovering/Resolving]
  - Depressed level of consciousness [Recovering/Resolving]
  - Laboratory test abnormal [Recovering/Resolving]
  - Hypophagia [Recovering/Resolving]
  - Gingival discomfort [Recovering/Resolving]
